FAERS Safety Report 6973249-1 (Version None)
Quarter: 2010Q3

REPORT INFORMATION
  Report Type: 
  Country: None (occurrence: None)
  Receive Date: 20100909
  Receipt Date: 20100901
  Transmission Date: 20110219
  Serious: Yes (Death)
  Sender: FDA-Public Use
  Company Number: AU-ROCHE-725042

PATIENT
  Age: 65 Year
  Sex: Female

DRUGS (4)
  1. TAMIFLU [Suspect]
     Indication: PRODUCT USED FOR UNKNOWN INDICATION
     Route: 042
  2. PIPERACILLIN AND TAZOBACTAM [Concomitant]
     Route: 042
     Dates: start: 20100816
  3. CIPROFLOXACIN [Concomitant]
     Route: 042
     Dates: start: 20100815
  4. VANCOMYCIN [Concomitant]
     Route: 042
     Dates: start: 20100816

REACTIONS (1)
  - DEATH [None]
